FAERS Safety Report 6839555-6 (Version None)
Quarter: 2010Q3

REPORT INFORMATION
  Report Type: 
  Country: None (occurrence: None)
  Receive Date: 20100714
  Receipt Date: 20100209
  Transmission Date: 20110219
  Serious: No
  Sender: FDA-Public Use
  Company Number: A0843764A

PATIENT
  Sex: Female

DRUGS (11)
  1. FLOVENT [Suspect]
     Indication: ASTHMA
     Route: 055
     Dates: end: 20100105
  2. ADVAIR DISKUS 100/50 [Suspect]
     Indication: ASTHMA
     Dosage: 1PUFF TWICE PER DAY
     Route: 055
     Dates: start: 20100105
  3. ALBUTEROL [Concomitant]
  4. IBUPROFEN [Concomitant]
  5. SIMVASTATIN [Concomitant]
  6. TRAZODONE HYDROCHLORIDE [Concomitant]
  7. SERTRALINE HCL [Concomitant]
  8. BUSPIRONE [Concomitant]
  9. OXYCODONE HCL [Concomitant]
  10. CLONAZEPAM [Concomitant]
  11. FLONASE [Concomitant]

REACTIONS (3)
  - DRUG INEFFECTIVE [None]
  - DYSPHONIA [None]
  - SECRETION DISCHARGE [None]
